FAERS Safety Report 18009439 (Version 2)
Quarter: 2024Q4

REPORT INFORMATION
  Report Type: Spontaneous
  Country: CA (occurrence: CA)
  Receive Date: 20200710
  Receipt Date: 20241016
  Transmission Date: 20250115
  Serious: Yes (Other)
  Sender: ALEXION PHARMACEUTICALS
  Company Number: 2020SE86497

PATIENT
  Age: 70 Year

DRUGS (12)
  1. FASLODEX [Suspect]
     Active Substance: FULVESTRANT
     Indication: Breast cancer
  2. FASLODEX [Suspect]
     Active Substance: FULVESTRANT
  3. FASLODEX [Suspect]
     Active Substance: FULVESTRANT
  4. FASLODEX [Suspect]
     Active Substance: FULVESTRANT
  5. ANASTROZOLE [Suspect]
     Active Substance: ANASTROZOLE
     Indication: Breast cancer
  6. ANASTROZOLE [Suspect]
     Active Substance: ANASTROZOLE
  7. ANASTROZOLE [Suspect]
     Active Substance: ANASTROZOLE
  8. ANASTROZOLE [Suspect]
     Active Substance: ANASTROZOLE
  9. TAMOXIFEN [Suspect]
     Active Substance: TAMOXIFEN
     Indication: Breast cancer
  10. TAMOXIFEN [Suspect]
     Active Substance: TAMOXIFEN
  11. TAMOXIFEN [Suspect]
     Active Substance: TAMOXIFEN
  12. TAMOXIFEN [Suspect]
     Active Substance: TAMOXIFEN

REACTIONS (6)
  - Breast cancer recurrent [Not Recovered/Not Resolved]
  - Malignant neoplasm progression [Not Recovered/Not Resolved]
  - Postoperative wound complication [Not Recovered/Not Resolved]
  - Rheumatoid arthritis [Not Recovered/Not Resolved]
  - Toxicity to various agents [Not Recovered/Not Resolved]
  - Hyperhidrosis [Not Recovered/Not Resolved]
